FAERS Safety Report 19077901 (Version 1)
Quarter: 2021Q1

REPORT INFORMATION
  Report Type: Spontaneous
  Country: IT (occurrence: IT)
  Receive Date: 20210331
  Receipt Date: 20210331
  Transmission Date: 20210420
  Serious: Yes (Other)
  Sender: FDA-Public Use
  Company Number: IT-PFIZER INC-2021324063

PATIENT
  Age: 59 Year
  Sex: Female

DRUGS (1)
  1. DOCETAXEL. [Suspect]
     Active Substance: DOCETAXEL
     Indication: BREAST CANCER
     Dosage: UNK

REACTIONS (3)
  - Cutis verticis gyrata [Recovered/Resolved]
  - Alopecia [Recovered/Resolved]
  - Hamartoma [Recovered/Resolved]
